FAERS Safety Report 24647889 (Version 2)
Quarter: 2024Q4

REPORT INFORMATION
  Report Type: Spontaneous
  Country: FR (occurrence: FR)
  Receive Date: 20241121
  Receipt Date: 20241126
  Transmission Date: 20250115
  Serious: Yes (Other)
  Sender: FRESENIUS KABI
  Company Number: None

PATIENT
  Age: 52 Year
  Sex: Female
  Weight: 76.4 kg

DRUGS (12)
  1. CLINDAMYCIN HYDROCHLORIDE [Suspect]
     Active Substance: CLINDAMYCIN HYDROCHLORIDE
     Indication: Septic shock
     Dosage: 600 MG, TID
     Route: 042
     Dates: start: 20241002, end: 20241010
  2. ONDANSETRON [Suspect]
     Active Substance: ONDANSETRON
     Indication: Abdominal pain
     Dosage: 8 MG, QD
     Route: 042
     Dates: start: 20240912, end: 20241002
  3. AMBISOME [Suspect]
     Active Substance: AMPHOTERICIN B
     Indication: Candida infection
     Dosage: 250 MG, QD?FORM OF ADMIN.: INJECTION
     Route: 042
     Dates: start: 20240918, end: 20240930
  4. AMBISOME [Suspect]
     Active Substance: AMPHOTERICIN B
     Dosage: 250 MG, QD?FORM OF ADMIN.: INJECTION
     Route: 042
     Dates: start: 20241002, end: 20241007
  5. PIPERACILLIN SODIUM\TAZOBACTAM SODIUM [Suspect]
     Active Substance: PIPERACILLIN SODIUM\TAZOBACTAM SODIUM
     Indication: Septic shock
     Dosage: 4 G, TID
     Route: 042
     Dates: start: 20241002, end: 20241010
  6. FILGRASTIM [Suspect]
     Active Substance: FILGRASTIM
     Indication: Neutropenia
     Dosage: 0.5 MG, QD
     Route: 058
     Dates: start: 20240927, end: 20241009
  7. FILGRASTIM [Suspect]
     Active Substance: FILGRASTIM
     Dosage: 300 IU, QD
     Route: 058
     Dates: start: 20240927, end: 20241009
  8. TRIMEBUTINE [Suspect]
     Active Substance: TRIMEBUTINE
     Indication: Abdominal pain
     Dosage: 50 MG, TID
     Route: 042
     Dates: start: 20240917, end: 20241010
  9. NEFOPAM HYDROCHLORIDE [Concomitant]
     Active Substance: NEFOPAM HYDROCHLORIDE
     Indication: Abdominal pain
     Dosage: 60 MG, QD
     Route: 042
     Dates: start: 20240917
  10. ACYCLOVIR [Concomitant]
     Active Substance: ACYCLOVIR
     Indication: Product used for unknown indication
     Dosage: 250 MG, TID
     Route: 042
     Dates: start: 20240929
  11. VITAMIN K1 [Concomitant]
     Active Substance: PHYTONADIONE
     Indication: Product used for unknown indication
     Dosage: 10 MG, Q1WK
     Route: 042
     Dates: start: 20240917
  12. PANTOPRAZOLE [Concomitant]
     Active Substance: PANTOPRAZOLE
     Indication: Product used for unknown indication
     Dosage: 40 MG, QD
     Route: 042
     Dates: start: 20240923

REACTIONS (1)
  - Proteinuria [Recovering/Resolving]

NARRATIVE: CASE EVENT DATE: 20241004
